FAERS Safety Report 5737528-8 (Version None)
Quarter: 2008Q2

REPORT INFORMATION
  Report Type: 
  Country: None (occurrence: None)
  Receive Date: 20080512
  Receipt Date: 20080512
  Transmission Date: 20081010
  Serious: Yes (Disabling, Other)
  Sender: FDA-Public Use
  Company Number: None

PATIENT
  Sex: Female
  Weight: 18.1439 kg

DRUGS (2)
  1. SINGULAIR [Suspect]
     Indication: ASTHMA
     Dosage: 4 MG ONE PER DAY CHEWABLE TABLETS
     Dates: start: 20061126, end: 20080402
  2. SINGULAIR [Suspect]
     Indication: HYPERSENSITIVITY
     Dosage: 4 MG ONE PER DAY CHEWABLE TABLETS
     Dates: start: 20061126, end: 20080402

REACTIONS (4)
  - ABNORMAL BEHAVIOUR [None]
  - CRYING [None]
  - DEPRESSION [None]
  - SCREAMING [None]
